FAERS Safety Report 9154911 (Version 1)
Quarter: 2013Q1

REPORT INFORMATION
  Report Type: Report from Study
  Country: US (occurrence: US)
  Receive Date: 20130311
  Receipt Date: 20130311
  Transmission Date: 20140127
  Serious: No
  Sender: FDA-Public Use
  Company Number: US-ABBOTT-12P-163-0921341-00

PATIENT
  Age: 35 Year
  Sex: Female
  Weight: 76.27 kg

DRUGS (4)
  1. LUPRON DEPOT 11.25 MG [Suspect]
     Indication: ENDOMETRIOSIS
     Dates: start: 20120228
  2. LISINOPRIL [Concomitant]
     Indication: HYPERTENSION
  3. XANAX [Concomitant]
     Indication: ANXIETY
  4. RESTORIL [Concomitant]
     Indication: INSOMNIA

REACTIONS (3)
  - Dysmenorrhoea [Recovering/Resolving]
  - Vaginal haemorrhage [Recovering/Resolving]
  - Abdominal pain [Recovering/Resolving]
